FAERS Safety Report 10888889 (Version 1)
Quarter: 2015Q1

REPORT INFORMATION
  Report Type: Spontaneous
  Country: PL (occurrence: PL)
  Receive Date: 20150305
  Receipt Date: 20150305
  Transmission Date: 20150721
  Serious: Yes (Death)
  Sender: FDA-Public Use
  Company Number: PL-NAPPMUNDI-DEU-2015-0016408

PATIENT
  Age: 66 Year
  Sex: Male

DRUGS (6)
  1. TARGIN [Suspect]
     Active Substance: NALOXONE HYDROCHLORIDE\OXYCODONE HYDROCHLORIDE
     Indication: CONSTIPATION
  2. XEFO [Concomitant]
     Active Substance: LORNOXICAM
     Dosage: 16 MG, DAILY
     Route: 048
  3. SPASMOLINA [Concomitant]
     Active Substance: ALVERINE CITRATE
     Dosage: 3 CAPSL, DAILY
  4. TARGIN [Suspect]
     Active Substance: NALOXONE HYDROCHLORIDE\OXYCODONE HYDROCHLORIDE
     Indication: CANCER PAIN
     Dosage: 20/10 MG, BID
     Route: 048
     Dates: start: 20150210, end: 20150210
  5. MATRIFEN [Concomitant]
     Active Substance: FENTANYL
     Dosage: 50 MCG/HR, DAILY
     Route: 062
  6. MEGALIA [Concomitant]
     Dosage: 20 ML, DAILY

REACTIONS (3)
  - Malignant neoplasm progression [Fatal]
  - Vomiting [Unknown]
  - Diarrhoea [Unknown]

NARRATIVE: CASE EVENT DATE: 20150210
